FAERS Safety Report 8697076 (Version 5)
Quarter: 2018Q3

REPORT INFORMATION
  Report Type: Spontaneous
  Country: FR (occurrence: FR)
  Receive Date: 20120801
  Receipt Date: 20180926
  Transmission Date: 20181010
  Serious: Yes (Hospitalization, Other)
  Sender: FDA-Public Use
  Company Number: FR-009507513-1207FRA010291

PATIENT
  Age: 88 Year
  Sex: Male
  Weight: 80 kg

DRUGS (11)
  1. DAFALGAN [Concomitant]
     Active Substance: ACETAMINOPHEN
     Route: 048
  2. JOSIR [Suspect]
     Active Substance: TAMSULOSIN
     Indication: PRODUCT USED FOR UNKNOWN INDICATION
     Dosage: 0.4 MG, QD
     Route: 048
     Dates: end: 20120315
  3. CALCIDOSE [Concomitant]
     Active Substance: CALCIUM CARBONATE
     Route: 048
  4. ENDOTELON [Concomitant]
     Active Substance: HERBALS
     Route: 048
  5. ADROVANCE [Suspect]
     Active Substance: ALENDRONATE SODIUM\CHOLECALCIFEROL
     Indication: PRODUCT USED FOR UNKNOWN INDICATION
     Dosage: 70 MG, QD
     Route: 048
     Dates: end: 20120315
  6. PLAVIX [Concomitant]
     Active Substance: CLOPIDOGREL BISULFATE
     Route: 048
  7. CHIBRO?PROSCAR [Concomitant]
     Active Substance: FINASTERIDE
     Route: 048
  8. LASILIX [Suspect]
     Active Substance: FUROSEMIDE
     Indication: PRODUCT USED FOR UNKNOWN INDICATION
     Dosage: 20 MG, QD
     Route: 048
  9. VIRLIX [Concomitant]
     Active Substance: CETIRIZINE HYDROCHLORIDE
     Route: 048
  10. ATACAND [Suspect]
     Active Substance: CANDESARTAN CILEXETIL
     Indication: PRODUCT USED FOR UNKNOWN INDICATION
     Dosage: 4 MG, QD
     Route: 048
     Dates: end: 20120315
  11. IMOVANE [Concomitant]
     Active Substance: ZOPICLONE
     Route: 048

REACTIONS (2)
  - Pemphigoid [Not Recovered/Not Resolved]
  - Toxic skin eruption [Not Recovered/Not Resolved]

NARRATIVE: CASE EVENT DATE: 20120306
